FAERS Safety Report 8924745 (Version 1)
Quarter: 2012Q4

REPORT INFORMATION
  Report Type: 
  Country: US (occurrence: US)
  Receive Date: 20121126
  Receipt Date: 20121126
  Transmission Date: 20130627
  Serious: No
  Sender: FDA-Public Use
  Company Number: US-009507513-1211USA008559

PATIENT

DRUGS (3)
  1. NUVARING [Suspect]
     Indication: CONTRACEPTION
     Dosage: UNK
     Dates: start: 200510, end: 200512
  2. NUVARING [Suspect]
     Dosage: UNK
     Dates: start: 20070611, end: 200804
  3. NUVARING [Suspect]
     Dosage: UNK
     Dates: start: 20100707, end: 20100921

REACTIONS (1)
  - Pregnancy [Unknown]
